FAERS Safety Report 16174726 (Version 2)
Quarter: 2019Q4

REPORT INFORMATION
  Report Type: Spontaneous
  Country: CA (occurrence: CA)
  Receive Date: 20190409
  Receipt Date: 20191120
  Transmission Date: 20200122
  Serious: Yes (Other)
  Sender: FDA-Public Use
  Company Number: CA-TEVA-2019-CA-1035469

PATIENT
  Age: 59 Year
  Sex: Male
  Weight: 80 kg

DRUGS (21)
  1. PENTASA [Suspect]
     Active Substance: MESALAMINE
     Dosage: 2 GRAM DAILY; DURATION- 2 MONTH
     Route: 065
  2. APO-PREDNISONE [Concomitant]
     Active Substance: PREDNISONE
  3. ARGININE [Concomitant]
     Active Substance: ARGININE
  4. FOLIC ACID. [Concomitant]
     Active Substance: FOLIC ACID
  5. ISONIAZID. [Concomitant]
     Active Substance: ISONIAZID
  6. TECTA [Concomitant]
     Active Substance: PANTOPRAZOLE MAGNESIUM
  7. PREDNISONE. [Suspect]
     Active Substance: PREDNISONE
     Indication: PRODUCT USED FOR UNKNOWN INDICATION
     Route: 048
  8. COENZYME Q10 [Concomitant]
     Active Substance: UBIDECARENONE
  9. PYRIDOXINE [Concomitant]
     Active Substance: PYRIDOXINE
  10. CORTIMENT (HYDROCORTISONE ACETATE) [Suspect]
     Active Substance: HYDROCORTISONE ACETATE
     Indication: PRODUCT USED FOR UNKNOWN INDICATION
     Dosage: 9 MILLIGRAM DAILY;
     Route: 065
  11. PREDNISONE. [Concomitant]
     Active Substance: PREDNISONE
  12. VITAMIN D [Concomitant]
     Active Substance: VITAMIN D NOS
  13. PREDNISONE. [Suspect]
     Active Substance: PREDNISONE
     Route: 048
  14. METHOTREXATE. [Suspect]
     Active Substance: METHOTREXATE
     Indication: PRODUCT USED FOR UNKNOWN INDICATION
     Route: 048
  15. PENTASA [Suspect]
     Active Substance: MESALAMINE
     Indication: PRODUCT USED FOR UNKNOWN INDICATION
     Dosage: 2000 MILLIGRAM DAILY;
     Route: 048
  16. CORTIFOAM [Suspect]
     Active Substance: HYDROCORTISONE ACETATE
     Indication: PRODUCT USED FOR UNKNOWN INDICATION
     Dosage: 1 DOSAGE FORMS DAILY;
     Route: 065
  17. LIPITOR [Concomitant]
     Active Substance: ATORVASTATIN CALCIUM
  18. VITAMIN C [Concomitant]
     Active Substance: ASCORBIC ACID
  19. METAMUCIL [Concomitant]
     Active Substance: PLANTAGO SEED
  20. OMEGA - 3 [Concomitant]
  21. VITAMIN B6 [Concomitant]
     Active Substance: PYRIDOXINE HYDROCHLORIDE

REACTIONS (2)
  - Crohn^s disease [Not Recovered/Not Resolved]
  - Drug ineffective [Not Recovered/Not Resolved]
